FAERS Safety Report 26081993 (Version 1)
Quarter: 2025Q4

REPORT INFORMATION
  Report Type: Spontaneous
  Country: US (occurrence: None)
  Receive Date: 20251121
  Receipt Date: 20251121
  Transmission Date: 20260118
  Serious: Yes (Other)
  Sender: FDA-CTU
  Company Number: None

PATIENT
  Age: 41 Year
  Sex: Female

DRUGS (1)
  1. BIOTIN\MINOXIDIL [Suspect]
     Active Substance: BIOTIN\MINOXIDIL
     Indication: Alopecia
     Dosage: 1 DF DOSAGE FORM DAILY ORAL
     Route: 048

REACTIONS (2)
  - Drug hypersensitivity [None]
  - Blister [None]

NARRATIVE: CASE EVENT DATE: 20251120
